FAERS Safety Report 9349039 (Version 2)
Quarter: 2013Q2

REPORT INFORMATION
  Report Type: Spontaneous
  Country: US (occurrence: US)
  Receive Date: 20130614
  Receipt Date: 20130618
  Transmission Date: 20140414
  Serious: No
  Sender: FDA-Public Use
  Company Number: US-VERTEX PHARMACEUTICALS INC-2013-007031

PATIENT
  Age: 56 Year
  Sex: Female
  Weight: 101 kg

DRUGS (9)
  1. INCIVEK [Suspect]
     Indication: HEPATITIS C
     Dosage: 750 MG, TID
     Route: 048
     Dates: start: 20130610
  2. RIBAVIRIN [Suspect]
     Indication: HEPATITIS C
     Dosage: 600 MG, BID
     Dates: start: 20130610
  3. PEGASYS [Suspect]
     Indication: HEPATITIS C
     Dosage: 180 ?G, QW
     Dates: start: 20130610
  4. SUCRALFATE [Concomitant]
  5. RANITIDINE [Concomitant]
  6. BENAZEPRIL [Concomitant]
  7. GABAPENTIN [Concomitant]
  8. ZOLOFT [Concomitant]
  9. TRAZODONE [Concomitant]

REACTIONS (1)
  - Diarrhoea [Recovered/Resolved]
